FAERS Safety Report 10420602 (Version 1)
Quarter: 2014Q3

REPORT INFORMATION
  Report Type: Spontaneous
  Country: US (occurrence: None)
  Receive Date: 20140828
  Receipt Date: 20140828
  Transmission Date: 20150326
  Serious: No
  Sender: FDA-Public Use
  Company Number: None

PATIENT
  Age: 68 Year
  Sex: Female
  Weight: 68.04 kg

DRUGS (2)
  1. TRETINOIN. [Suspect]
     Active Substance: TRETINOIN
     Indication: ACNE
     Dosage: AS NEEDED AT NIGHT  AT BEDTIME  APPLIED TO A SURFACE, USUALLY THE SKIN
     Route: 061
     Dates: start: 20140527, end: 20140715
  2. TRETINOIN. [Suspect]
     Active Substance: TRETINOIN
     Indication: ABNORMAL PALMAR/PLANTAR CREASES
     Dosage: AS NEEDED AT NIGHT  AT BEDTIME  APPLIED TO A SURFACE, USUALLY THE SKIN
     Route: 061
     Dates: start: 20140527, end: 20140715

REACTIONS (1)
  - Drug ineffective [None]

NARRATIVE: CASE EVENT DATE: 20140530
